FAERS Safety Report 7431824-4 (Version None)
Quarter: 2011Q2

REPORT INFORMATION
  Report Type: 
  Country: None (occurrence: None)
  Receive Date: 20110419
  Receipt Date: 20110419
  Transmission Date: 20111010
  Serious: No
  Sender: FDA-Public Use
  Company Number: None

PATIENT
  Age: 67 Year
  Sex: Male
  Weight: 54 kg

DRUGS (1)
  1. VANCOMYCIN [Suspect]
     Dosage: 1000 MG ONCE IV
     Route: 042
     Dates: start: 20101007, end: 20101007

REACTIONS (3)
  - HYPOTENSION [None]
  - ANAPHYLACTIC REACTION [None]
  - INFUSION RELATED REACTION [None]
